FAERS Safety Report 5837498-8 (Version None)
Quarter: 2008Q3

REPORT INFORMATION
  Report Type: 
  Country: None (occurrence: None)
  Receive Date: 20080807
  Receipt Date: 20080804
  Transmission Date: 20090109
  Serious: No
  Sender: FDA-Public Use
  Company Number: US-BOEHRINGER INGELHEIM GMBH, GERMANY-2008-BP-12206BP

PATIENT
  Age: 88 Year
  Sex: Male

DRUGS (6)
  1. COMBIVENT [Suspect]
     Indication: CHRONIC OBSTRUCTIVE PULMONARY DISEASE
     Dosage: (18/103 MCG), 2 PUFFS, TID
     Route: 055
     Dates: start: 20080801
  2. CLARITIN -GENERIC [Concomitant]
     Indication: RHINITIS
  3. NASONEX [Concomitant]
     Indication: RHINITIS
  4. LISINOPRIL [Concomitant]
     Indication: HYPERTENSION
  5. AMLODIPINE [Concomitant]
     Indication: HYPERTENSION
  6. ASPIRIN [Concomitant]
     Indication: HYPERTENSION

REACTIONS (2)
  - RHINITIS [None]
  - SOMNOLENCE [None]
